FAERS Safety Report 6653732-9 (Version None)
Quarter: 2010Q1

REPORT INFORMATION
  Report Type: 
  Country: None (occurrence: None)
  Receive Date: 20100326
  Receipt Date: 20100308
  Transmission Date: 20100710
  Serious: Yes (Death, Hospitalization, Other)
  Sender: FDA-Public Use
  Company Number: US-ROCHE-678914

PATIENT
  Sex: Female

DRUGS (15)
  1. MYCOPHENOLATE MOFETIL [Suspect]
     Route: 048
     Dates: start: 20070315
  2. BELATACEPT [Suspect]
     Dosage: MOST RECENT DOSE: 23 NOVEMBER 2009
     Route: 042
     Dates: start: 20070315
  3. PREDNISONE [Suspect]
     Route: 048
     Dates: start: 20090224
  4. INSULIN [Concomitant]
     Dates: start: 20070318
  5. ASPIRIN [Concomitant]
     Dates: start: 20070621
  6. FERROUS SULFATE TAB [Concomitant]
     Dates: start: 20070801
  7. CLOPIDOGREL [Concomitant]
     Dates: start: 20070519
  8. CLOPIDOGREL [Concomitant]
     Dates: start: 20091112
  9. CARDIZEM [Concomitant]
     Dates: start: 20080729
  10. ROSUVASTATIN CALCIUM [Concomitant]
     Dates: start: 20070322
  11. WARFARIN SODIUM [Concomitant]
     Dates: start: 20080903
  12. WARFARIN SODIUM [Concomitant]
     Dates: start: 20091021
  13. CARVEDILOL [Concomitant]
     Dates: start: 20090107
  14. FUROSEMIDE [Concomitant]
     Dates: start: 20090504
  15. POTASSIUM [Concomitant]

REACTIONS (4)
  - CARDIAC ARREST [None]
  - CELLULITIS [None]
  - MENINGIOMA [None]
  - URINARY TRACT INFECTION [None]
